FAERS Safety Report 24451999 (Version 2)
Quarter: 2024Q4

REPORT INFORMATION
  Report Type: Spontaneous
  Country: US (occurrence: US)
  Receive Date: 20241017
  Receipt Date: 20241031
  Transmission Date: 20250115
  Serious: Yes (Death, Hospitalization)
  Sender: TEVA
  Company Number: US-TEVA-VS-3253873

PATIENT
  Age: 68 Year
  Sex: Female

DRUGS (12)
  1. EPINEPHRINE [Suspect]
     Active Substance: EPINEPHRINE
     Indication: BRASH syndrome
     Route: 065
  2. VERAPAMIL [Suspect]
     Active Substance: VERAPAMIL HYDROCHLORIDE
     Indication: Suicide attempt
     Route: 065
  3. LISINOPRIL [Concomitant]
     Active Substance: LISINOPRIL
     Indication: Hypertension
     Route: 065
  4. ATROPINE [Suspect]
     Active Substance: ATROPINE
     Indication: BRASH syndrome
     Route: 065
  5. DEXTROSE [Suspect]
     Active Substance: DEXTROSE MONOHYDRATE
     Indication: BRASH syndrome
     Route: 065
  6. CALCIUM [Suspect]
     Active Substance: CALCIUM
     Indication: BRASH syndrome
     Route: 042
  7. GLUCAGON [Suspect]
     Active Substance: GLUCAGON
     Indication: BRASH syndrome
     Route: 042
  8. SODIUM BICARBONATE [Suspect]
     Active Substance: SODIUM BICARBONATE
     Indication: BRASH syndrome
     Route: 042
  9. INSULIN NOS [Suspect]
     Active Substance: INSULIN NOS
     Indication: BRASH syndrome
     Route: 065
  10. DOPAMINE [Suspect]
     Active Substance: DOPAMINE HYDROCHLORIDE
     Indication: BRASH syndrome
     Route: 065
  11. NOREPINEPHRINE [Suspect]
     Active Substance: NOREPINEPHRINE\NOREPINEPHRINE BITARTRATE
     Indication: BRASH syndrome
     Route: 065
  12. VASOPRESSIN [Suspect]
     Active Substance: VASOPRESSIN
     Indication: BRASH syndrome
     Route: 065

REACTIONS (4)
  - BRASH syndrome [Fatal]
  - Drug ineffective [Fatal]
  - Intentional overdose [Fatal]
  - Intestinal ischaemia [Fatal]
